FAERS Safety Report 4507691-5 (Version None)
Quarter: 2004Q4

REPORT INFORMATION
  Report Type: 
  Country: None (occurrence: None)
  Receive Date: 20041123
  Receipt Date: 20041115
  Transmission Date: 20050328
  Serious: Yes (Hospitalization)
  Sender: FDA-Public Use
  Company Number: 200413513JP

PATIENT
  Age: 66 Year
  Sex: Female
  Weight: 55 kg

DRUGS (8)
  1. ARAVA [Suspect]
     Indication: RHEUMATOID ARTHRITIS
     Route: 048
     Dates: start: 20031031, end: 20031109
  2. PREDNISOLONE [Concomitant]
     Route: 048
  3. SELBEX [Concomitant]
     Route: 048
  4. DIBASIC CALCIUM PHOSPHATE [Concomitant]
     Route: 048
  5. CLINORIL [Concomitant]
     Dosage: DOSE: 4 TABLETS
     Route: 048
  6. GLAKAY [Concomitant]
     Dosage: DOSE: 2 CAPSULES
     Route: 048
  7. FERROMIA [Concomitant]
     Dosage: DOSE: 2 TABLETS
     Route: 048
  8. ACTONEL [Concomitant]
     Dosage: DOSE: 1 TABLET
     Route: 048

REACTIONS (7)
  - ALANINE AMINOTRANSFERASE INCREASED [None]
  - ASPARTATE AMINOTRANSFERASE INCREASED [None]
  - BLOOD ALKALINE PHOSPHATASE INCREASED [None]
  - GAMMA-GLUTAMYLTRANSFERASE INCREASED [None]
  - PRURITUS GENERALISED [None]
  - SKIN DISORDER [None]
  - VOMITING [None]
